FAERS Safety Report 23195680 (Version 2)
Quarter: 2023Q4

REPORT INFORMATION
  Report Type: Report from Study
  Country: US (occurrence: US)
  Receive Date: 20231117
  Receipt Date: 20231123
  Transmission Date: 20240110
  Serious: No
  Sender: FDA-Public Use
  Company Number: US-002147023-NVSC2023US240960

PATIENT
  Sex: Male

DRUGS (2)
  1. COSENTYX [Suspect]
     Active Substance: SECUKINUMAB
     Indication: Psoriasis
     Dosage: UNK
     Route: 065
  2. ELIDEL [Suspect]
     Active Substance: PIMECROLIMUS
     Indication: Psoriasis
     Dosage: UNK
     Route: 061

REACTIONS (16)
  - Psoriasis [Unknown]
  - Skin exfoliation [Unknown]
  - Skin mass [Unknown]
  - Skin erosion [Unknown]
  - Macule [Unknown]
  - Dry skin [Unknown]
  - Prurigo [Unknown]
  - Lentigo [Unknown]
  - Papule [Unknown]
  - Inflammation [Unknown]
  - Scab [Unknown]
  - Xerosis [Unknown]
  - Pruritus [Unknown]
  - Seborrhoeic keratosis [Unknown]
  - Skin irritation [Unknown]
  - Therapeutic product effect incomplete [Unknown]
